FAERS Safety Report 5655534-9 (Version None)
Quarter: 2008Q1

REPORT INFORMATION
  Report Type: 
  Country: None (occurrence: None)
  Receive Date: 20080307
  Receipt Date: 20080227
  Transmission Date: 20080703
  Serious: Yes (Other)
  Sender: FDA-Public Use
  Company Number: US-SANOFI-SYNTHELABO-A03200704712

PATIENT
  Age: 74 Year
  Sex: Female

DRUGS (4)
  1. ALEVE [Concomitant]
     Indication: ARTHRITIS
     Dosage: UNK
     Route: 048
  2. PROZAC [Concomitant]
     Indication: DEPRESSION
     Dosage: UNK
     Route: 048
  3. AMBIEN [Suspect]
     Indication: INSOMNIA
     Route: 048
  4. AMBIEN [Concomitant]
     Dosage: CUT TABLETS, TAKING 1/2 A TABLET
     Route: 048

REACTIONS (7)
  - AMNESIA [None]
  - IMPAIRED DRIVING ABILITY [None]
  - INTENTIONAL DRUG MISUSE [None]
  - OVERDOSE [None]
  - ROAD TRAFFIC ACCIDENT [None]
  - SLEEP-RELATED EATING DISORDER [None]
  - SOMNAMBULISM [None]
